FAERS Safety Report 9181377 (Version 1)
Quarter: 2013Q1

REPORT INFORMATION
  Report Type: Spontaneous
  Country: US (occurrence: US)
  Receive Date: 20130322
  Receipt Date: 20130322
  Transmission Date: 20140127
  Serious: Yes (Other)
  Sender: FDA-Public Use
  Company Number: US-JNJFOC-20130305799

PATIENT
  Age: 65 Year
  Sex: Female
  Weight: 63.05 kg

DRUGS (2)
  1. REMICADE [Suspect]
     Indication: ARTHRITIS
     Route: 042
     Dates: start: 201212, end: 20130123
  2. DAYPRO [Concomitant]
     Indication: ANTIINFLAMMATORY THERAPY
     Route: 048

REACTIONS (2)
  - Bronchopulmonary disease [Not Recovered/Not Resolved]
  - Pleural fibrosis [Not Recovered/Not Resolved]
